FAERS Safety Report 24659909 (Version 2)
Quarter: 2024Q4

REPORT INFORMATION
  Report Type: Report from Study
  Country: US (occurrence: US)
  Receive Date: 20241125
  Receipt Date: 20241227
  Transmission Date: 20250115
  Serious: Yes (Other)
  Sender: Pyros Pharmaceuticals
  Company Number: US-PYROS PHARMACEUTICALS, INC-2024-PYROS-US000088

PATIENT
  Sex: Female
  Weight: 9.25 kg

DRUGS (12)
  1. VIGAFYDE [Suspect]
     Active Substance: VIGABATRIN
     Indication: Infantile spasms
     Dosage: 200 MG (2 ML), BID
     Route: 048
     Dates: start: 20240928, end: 20240930
  2. VIGAFYDE [Suspect]
     Active Substance: VIGABATRIN
     Dosage: 450 MG (4.5 ML), BID
     Route: 048
     Dates: start: 20241001, end: 20241004
  3. VIGAFYDE [Suspect]
     Active Substance: VIGABATRIN
     Dosage: 650 MG (6.5 ML), BID
     Route: 048
     Dates: start: 20241005, end: 20241113
  4. VIGAFYDE [Suspect]
     Active Substance: VIGABATRIN
     Dosage: 675 MG (6.75 ML), BID
     Dates: start: 20241114
  5. PREDNISOLONE [Suspect]
     Active Substance: PREDNISOLONE
     Indication: Product used for unknown indication
     Dosage: UNK
     Route: 065
  6. KEPPRA [Concomitant]
     Active Substance: LEVETIRACETAM
     Indication: Infantile spasms
     Dosage: 1.75 ML, BID
     Route: 048
     Dates: start: 202409
  7. TOPAMAX [Concomitant]
     Active Substance: TOPIRAMATE
     Indication: Product used for unknown indication
     Dosage: 1 ML EVERY MORNING
     Route: 065
  8. TOPAMAX [Concomitant]
     Active Substance: TOPIRAMATE
     Dosage: 1.5 ML EVERY EVENING
     Route: 065
  9. CLONAZEPAM [Concomitant]
     Active Substance: CLONAZEPAM
     Indication: Product used for unknown indication
     Route: 065
  10. TYLENOL [Concomitant]
     Active Substance: ACETAMINOPHEN
     Indication: Product used for unknown indication
     Dosage: UNK
     Route: 065
  11. SIMETHICONE (DIMETHICONE) [Concomitant]
     Active Substance: DIMETHICONE
     Indication: Product used for unknown indication
     Route: 065
  12. PREDNISONE [Concomitant]
     Active Substance: PREDNISONE
     Indication: Product used for unknown indication
     Route: 065

REACTIONS (6)
  - Tongue movement disturbance [Unknown]
  - Gastrostomy [Unknown]
  - Drug ineffective [Unknown]
  - Off label use [Unknown]
  - Somnolence [Recovered/Resolved]
  - Vomiting [Unknown]

NARRATIVE: CASE EVENT DATE: 20240101
